FAERS Safety Report 7644215-8 (Version None)
Quarter: 2011Q3

REPORT INFORMATION
  Report Type: 
  Country: None (occurrence: None)
  Receive Date: 20110729
  Receipt Date: 20110727
  Transmission Date: 20111222
  Serious: Yes (Other)
  Sender: FDA-Public Use
  Company Number: CA-BAYER-201021213NA

PATIENT
  Age: 48 Year
  Sex: Female
  Weight: 91 kg

DRUGS (4)
  1. ORTHO TRI-CYCLEN LO [Suspect]
     Indication: CONTRACEPTION
     Route: 048
     Dates: start: 20100404, end: 20100419
  2. ADVIL LIQUI-GELS [Concomitant]
     Indication: ARTHRALGIA
     Dosage: 200 MG (DAILY DOSE), , ORAL
     Route: 048
     Dates: start: 20100217
  3. ALESSE [Concomitant]
     Indication: ORAL CONTRACEPTION
  4. ADVIL LIQUI-GELS [Concomitant]
     Indication: PREMENSTRUAL SYNDROME
     Dosage: 200 MG (DAILY DOSE), , ORAL
     Route: 048
     Dates: start: 20070101

REACTIONS (7)
  - DIABETES INSIPIDUS [None]
  - ASTHENIA [None]
  - HEADACHE [None]
  - POLYURIA [None]
  - NOCTURIA [None]
  - DIZZINESS [None]
  - THIRST [None]
